FAERS Safety Report 4552793-0 (Version None)
Quarter: 2005Q1

REPORT INFORMATION
  Report Type: 
  Country: None (occurrence: None)
  Receive Date: 20050114
  Receipt Date: 20050106
  Transmission Date: 20050727
  Serious: Yes (Other)
  Sender: FDA-Public Use
  Company Number: FR-ROCHE-391697

PATIENT
  Sex: Male

DRUGS (2)
  1. PEGASYS [Suspect]
     Indication: DRUG USE FOR UNKNOWN INDICATION
     Dosage: FORM REPORTED AS INJECTABLE SOLUTION.
     Route: 058
  2. COPEGUS [Suspect]
     Indication: DRUG USE FOR UNKNOWN INDICATION
     Route: 048

REACTIONS (7)
  - ANAEMIA [None]
  - DIFFICULTY IN WALKING [None]
  - MYALGIA [None]
  - NEUTROPENIA [None]
  - PERIPHERAL MOTOR NEUROPATHY [None]
  - RENAL FAILURE [None]
  - SEPSIS [None]
